FAERS Safety Report 8848760 (Version 2)
Quarter: 2012Q4

REPORT INFORMATION
  Report Type: 
  Country: PL (occurrence: PL)
  Receive Date: 20121018
  Receipt Date: 20121029
  Transmission Date: 20130627
  Serious: Yes (Hospitalization)
  Sender: FDA-Public Use
  Company Number: PL-PFIZER INC-2012257571

PATIENT
  Age: 53 Year
  Sex: Male

DRUGS (10)
  1. AMIODARONE HCL [Suspect]
     Indication: ATRIAL FIBRILLATION
     Dosage: UNK
     Route: 065
  2. AMIODARONE HCL [Suspect]
     Indication: ATRIAL FLUTTER
  3. AMIODARONE HCL [Suspect]
     Indication: POLYMORPHIC VENTRICULAR TACHYCARDIA
  4. ISOSORBIDE MONONITRATE [Suspect]
     Indication: VASOSPASTIC ANGINA
     Dosage: 100mg, UNK
     Route: 065
  5. VERAPAMIL HYDROCHLORIDE [Suspect]
     Indication: VASOSPASTIC ANGINA
     Dosage: 240 mg, once daily
     Route: 065
  6. VERAPAMIL HYDROCHLORIDE [Suspect]
     Dosage: 240 mg, twice daily
     Route: 065
  7. VERAPAMIL HYDROCHLORIDE [Suspect]
     Dosage: 320 mg, thrice daily
     Route: 065
  8. NITROGLYCERIN [Concomitant]
     Indication: SPASM OF ARTERY
     Dosage: UNK
     Route: 022
  9. NITROGLYCERIN [Concomitant]
     Indication: ANGINA PECTORIS
  10. MOLSIDOMINE [Concomitant]
     Indication: VASOSPASTIC ANGINA
     Dosage: 8 mg, UNK

REACTIONS (4)
  - Ventricular tachycardia [Recovered/Resolved]
  - Drug ineffective [Unknown]
  - Pulseless electrical activity [Recovered/Resolved]
  - Cardiac arrest [Recovered/Resolved]
